FAERS Safety Report 23441165 (Version 1)
Quarter: 2024Q1

REPORT INFORMATION
  Report Type: Spontaneous
  Country: NL (occurrence: NL)
  Receive Date: 20240125
  Receipt Date: 20240125
  Transmission Date: 20240410
  Serious: Yes (Life-Threatening, Hospitalization, Other)
  Sender: FDA-Public Use
  Company Number: NL-002147023-NVSC2023NL158914

PATIENT
  Age: 69 Year
  Sex: Female
  Weight: 70.7 kg

DRUGS (3)
  1. ATENOLOL [Suspect]
     Active Substance: ATENOLOL
     Indication: Percutaneous coronary intervention
     Dosage: UNK
     Route: 065
     Dates: start: 2000, end: 20230629
  2. ATENOLOL [Suspect]
     Active Substance: ATENOLOL
     Indication: Stent placement
  3. ATENOLOL [Suspect]
     Active Substance: ATENOLOL
     Indication: Hypertension

REACTIONS (1)
  - Circulatory collapse [Recovered/Resolved]

NARRATIVE: CASE EVENT DATE: 20230629
